FAERS Safety Report 9709992 (Version 1)
Quarter: 2013Q4

REPORT INFORMATION
  Report Type: Spontaneous
  Country: US (occurrence: US)
  Receive Date: 20131126
  Receipt Date: 20131126
  Transmission Date: 20140711
  Serious: No
  Sender: FDA-Public Use
  Company Number: US-BAYER-2013-144234

PATIENT
  Age: 34 Year
  Sex: Male

DRUGS (2)
  1. MAGNEVIST [Suspect]
     Indication: NUCLEAR MAGNETIC RESONANCE IMAGING
     Dosage: 23 ML, ONCE
     Dates: start: 20131122, end: 20131122
  2. MAGNEVIST [Suspect]
     Indication: HEPATIC NEOPLASM

REACTIONS (2)
  - Urticaria [Recovered/Resolved]
  - Flushing [Recovered/Resolved]
